FAERS Safety Report 4535996-0 (Version None)
Quarter: 2004Q4

REPORT INFORMATION
  Report Type: 
  Country: None (occurrence: None)
  Receive Date: 20041220
  Receipt Date: 20041210
  Transmission Date: 20050328
  Serious: No
  Sender: FDA-Public Use
  Company Number: TPA2004A01527

PATIENT

DRUGS (1)
  1. ACTOS [Suspect]
     Dosage: 45 MG PER ORAL
     Route: 048

REACTIONS (2)
  - MEDICATION ERROR [None]
  - PHARMACEUTICAL PRODUCT COMPLAINT [None]
